FAERS Safety Report 19223025 (Version 1)
Quarter: 2021Q2

REPORT INFORMATION
  Report Type: Spontaneous
  Country: US (occurrence: US)
  Receive Date: 20210505
  Receipt Date: 20210505
  Transmission Date: 20210717
  Serious: Yes (Other)
  Sender: FDA-Public Use
  Company Number: US-ELI_LILLY_AND_COMPANY-US202104011441

PATIENT
  Sex: Male

DRUGS (1)
  1. GLUCAGON (GASTRO) [Suspect]
     Active Substance: GLUCAGON
     Indication: BLOOD GLUCOSE DECREASED
     Dosage: 1 MG, UNKNOWN
     Route: 065

REACTIONS (1)
  - Blood glucose decreased [Unknown]
